FAERS Safety Report 25642946 (Version 1)
Quarter: 2025Q3

REPORT INFORMATION
  Report Type: Spontaneous
  Country: EU (occurrence: EU)
  Receive Date: 20250805
  Receipt Date: 20250805
  Transmission Date: 20251020
  Serious: Yes (Disabling)
  Sender: CHEPLAPHARM
  Company Number: None

PATIENT
  Age: 19 Year
  Sex: Male

DRUGS (20)
  1. OLANZAPINE PAMOATE [Suspect]
     Active Substance: OLANZAPINE PAMOATE
     Indication: Anxiety
     Route: 030
     Dates: start: 20150901, end: 20181010
  2. OLANZAPINE PAMOATE [Suspect]
     Active Substance: OLANZAPINE PAMOATE
     Indication: Psychotic disorder
     Route: 030
     Dates: start: 20150901, end: 20181010
  3. OLANZAPINE PAMOATE [Suspect]
     Active Substance: OLANZAPINE PAMOATE
     Indication: Schizophrenia
     Route: 030
     Dates: start: 20150901, end: 20181010
  4. OLANZAPINE PAMOATE [Suspect]
     Active Substance: OLANZAPINE PAMOATE
     Indication: Depression
     Route: 030
     Dates: start: 20150901, end: 20181010
  5. ABILIFY [Suspect]
     Active Substance: ARIPIPRAZOLE
     Indication: Psychotic disorder
     Dates: start: 20150901, end: 2017
  6. ABILIFY [Suspect]
     Active Substance: ARIPIPRAZOLE
     Indication: Anxiety
     Dates: start: 20150901, end: 2017
  7. ABILIFY [Suspect]
     Active Substance: ARIPIPRAZOLE
     Indication: Depression
     Dates: start: 20150901, end: 2017
  8. ABILIFY [Suspect]
     Active Substance: ARIPIPRAZOLE
     Indication: Psychotic disorder
     Dates: start: 201801, end: 20181010
  9. ABILIFY [Suspect]
     Active Substance: ARIPIPRAZOLE
     Indication: Anxiety
     Dates: start: 201801, end: 20181010
  10. ABILIFY [Suspect]
     Active Substance: ARIPIPRAZOLE
     Indication: Depression
     Dates: start: 201801, end: 20181010
  11. ZUCLOPENTHIXOL [Suspect]
     Active Substance: ZUCLOPENTHIXOL
     Indication: Product used for unknown indication
     Dates: start: 20150901
  12. LATUDA [Concomitant]
     Active Substance: LURASIDONE HYDROCHLORIDE
     Indication: Product used for unknown indication
     Dates: start: 20150901
  13. CHLORPROTHIXENE [Concomitant]
     Active Substance: CHLORPROTHIXENE
     Indication: Product used for unknown indication
     Dates: start: 20150901
  14. LEVOMEPROMAZINE [Concomitant]
     Active Substance: LEVOMEPROMAZINE
     Indication: Product used for unknown indication
     Dates: start: 20150901
  15. PALIPERIDONE PALMITATE [Concomitant]
     Active Substance: PALIPERIDONE PALMITATE
     Indication: Product used for unknown indication
     Dates: start: 20150901
  16. PALIPERIDONE PALMITATE [Concomitant]
     Active Substance: PALIPERIDONE PALMITATE
     Indication: Product used for unknown indication
     Dates: start: 2016
  17. QUETIAPINE [Concomitant]
     Active Substance: QUETIAPINE
     Indication: Product used for unknown indication
     Dates: start: 20150901
  18. Akineto [Concomitant]
     Indication: Product used for unknown indication
     Dates: start: 2019
  19. PERPHENAZINE [Concomitant]
     Active Substance: PERPHENAZINE
     Indication: Product used for unknown indication
     Dates: start: 2019
  20. CLOZAPINE [Concomitant]
     Active Substance: CLOZAPINE
     Indication: Product used for unknown indication
     Dates: start: 201908

REACTIONS (34)
  - Catatonia [Unknown]
  - Dysphagia [Unknown]
  - Decreased appetite [Unknown]
  - Malnutrition [Unknown]
  - Bradycardia [Unknown]
  - Speech disorder [Unknown]
  - Reduced facial expression [Unknown]
  - Vision blurred [Unknown]
  - Abdominal pain [Unknown]
  - Somnolence [Unknown]
  - Akathisia [Unknown]
  - Hyperhidrosis [Unknown]
  - Alopecia [Unknown]
  - Insomnia [Unknown]
  - Confusional state [Unknown]
  - Panic reaction [Unknown]
  - Emotional disorder [Unknown]
  - Irritability [Unknown]
  - Restlessness [Unknown]
  - Swelling [Unknown]
  - Pain in extremity [Unknown]
  - Erythema [Unknown]
  - Bradykinesia [Unknown]
  - Agitation [Unknown]
  - Tremor [Unknown]
  - Anxiety [Unknown]
  - Trismus [Unknown]
  - Musculoskeletal stiffness [Not Recovered/Not Resolved]
  - Hypokinesia [Not Recovered/Not Resolved]
  - Motor dysfunction [Not Recovered/Not Resolved]
  - Impaired work ability [Not Recovered/Not Resolved]
  - Mobility decreased [Unknown]
  - Eye pain [Unknown]
  - Fatigue [Unknown]

NARRATIVE: CASE EVENT DATE: 20150911
